FAERS Safety Report 6958804-7 (Version None)
Quarter: 2010Q3

REPORT INFORMATION
  Report Type: 
  Country: None (occurrence: None)
  Receive Date: 20100831
  Receipt Date: 20100825
  Transmission Date: 20110219
  Serious: Yes (Death, Hospitalization)
  Sender: FDA-Public Use
  Company Number: PHHY2010US53478

PATIENT
  Sex: Female

DRUGS (12)
  1. RECLAST [Suspect]
     Indication: OSTEOPOROSIS
     Dosage: 5 MG
     Dates: start: 20100630
  2. PREDNISONE [Concomitant]
     Indication: POLYMYALGIA RHEUMATICA
     Dosage: UNK
  3. ANTIHYPERTENSIVE DRUGS [Concomitant]
  4. CHOLESTEROL REDUCERS [Concomitant]
  5. WARFARIN SODIUM [Concomitant]
     Dosage: 7.5 MG, BID
  6. ATENOLOL [Concomitant]
     Dosage: 25 MG DAILY
  7. SIMVASTATIN [Concomitant]
     Dosage: 60 MG DAILY
  8. ALPRAZOLAM [Concomitant]
  9. LISINOPRIL [Concomitant]
  10. CITRACAL [Concomitant]
     Dosage: 630 MG DAILY
  11. ASPIRIN [Concomitant]
     Dosage: UNK
  12. OMEPRAZOLE [Concomitant]
     Dosage: UNK

REACTIONS (30)
  - ASPARTATE AMINOTRANSFERASE INCREASED [None]
  - ASTHENIA [None]
  - ATELECTASIS [None]
  - ATRIAL FIBRILLATION [None]
  - BLOOD ALKALINE PHOSPHATASE INCREASED [None]
  - BLOOD LACTATE DEHYDROGENASE INCREASED [None]
  - BUNDLE BRANCH BLOCK LEFT [None]
  - DEATH [None]
  - FATIGUE [None]
  - GENERAL PHYSICAL HEALTH DETERIORATION [None]
  - HEADACHE [None]
  - HEPATIC STEATOSIS [None]
  - HYPERLIPIDAEMIA [None]
  - LEUKAEMIA [None]
  - LEUKOCYTOSIS [None]
  - LIVER FUNCTION TEST ABNORMAL [None]
  - LYMPHOPROLIFERATIVE DISORDER [None]
  - MALAISE [None]
  - MITRAL VALVE INCOMPETENCE [None]
  - MYALGIA [None]
  - NAUSEA [None]
  - NEUTROPHIL COUNT ABNORMAL [None]
  - NEUTROPHIL TOXIC GRANULATION PRESENT [None]
  - NUCLEATED RED CELLS [None]
  - PULMONARY HYPERTENSION [None]
  - PYREXIA [None]
  - TACHYCARDIA [None]
  - THROMBOCYTOPENIA [None]
  - VOMITING [None]
  - WHITE BLOOD CELL DISORDER [None]
